FAERS Safety Report 6433958-X (Version None)
Quarter: 2009Q4

REPORT INFORMATION
  Report Type: 
  Country: None (occurrence: None)
  Receive Date: 20091106
  Receipt Date: 20091106
  Transmission Date: 20100525
  Serious: Yes (Hospitalization)
  Sender: FDA-Public Use
  Company Number: None

PATIENT
  Age: 87 Year
  Sex: Male
  Weight: 77.3 kg

DRUGS (16)
  1. AXONA [Suspect]
     Indication: IRON OVERLOAD
     Dosage: 40 GRAMS DAILY ORAL
     Route: 048
     Dates: start: 20090918
  2. ARICEPT [Suspect]
     Indication: DEMENTIA
     Dosage: 20 MG DAILY ORAL
     Route: 048
  3. ARICEPT [Concomitant]
  4. NAMENDA [Concomitant]
  5. EXELON [Concomitant]
  6. VASOTEC [Concomitant]
  7. IMDUR [Concomitant]
  8. PROSCAR [Concomitant]
  9. SYNTHROID [Concomitant]
  10. DOXYCYCLINE [Concomitant]
  11. FOLIC ACID [Concomitant]
  12. IBUPROFEN [Concomitant]
  13. VITAMIN B-12 [Concomitant]
  14. VITAMIN B COMPLEX CAP [Concomitant]
  15. VITAMIN D [Concomitant]
  16. OS-CAL [Concomitant]

REACTIONS (9)
  - ANAEMIA [None]
  - ASTHENIA [None]
  - CHEST DISCOMFORT [None]
  - DIARRHOEA [None]
  - DYSPNOEA [None]
  - FREQUENT BOWEL MOVEMENTS [None]
  - HYPERHIDROSIS [None]
  - SINUS BRADYCARDIA [None]
  - SYNCOPE [None]
